FAERS Safety Report 17498061 (Version 1)
Quarter: 2020Q1

REPORT INFORMATION
  Report Type: Spontaneous
  Country: US (occurrence: US)
  Receive Date: 20200304
  Receipt Date: 20200304
  Transmission Date: 20200409
  Serious: Yes (Other)
  Sender: FDA-Public Use
  Company Number: US-BAYER-2020-034821

PATIENT
  Sex: Male
  Weight: 108.84 kg

DRUGS (6)
  1. KOGENATE FS [Suspect]
     Active Substance: ANTIHEMOPHILIC FACTOR, HUMAN RECOMBINANT
     Indication: FACTOR VIII DEFICIENCY
     Dosage: UNK UNK, QD
     Route: 042
     Dates: start: 201910
  2. KOGENATE FS [Suspect]
     Active Substance: ANTIHEMOPHILIC FACTOR, HUMAN RECOMBINANT
     Indication: EPISTAXIS
     Dosage: UNK UNK, PRN
     Route: 042
  3. ARIPIPRAZOLE. [Concomitant]
     Active Substance: ARIPIPRAZOLE
  4. KOGENATE FS [Suspect]
     Active Substance: ANTIHEMOPHILIC FACTOR, HUMAN RECOMBINANT
     Indication: FACTOR VIII DEFICIENCY
     Dosage: 3 DOSES TO TREAT THE SHOULDER BLEED
  5. RISPERIDONE. [Concomitant]
     Active Substance: RISPERIDONE
  6. TUMS ULTRA [Concomitant]
     Active Substance: CALCIUM CARBONATE

REACTIONS (1)
  - Haemarthrosis [None]
